FAERS Safety Report 25171177 (Version 3)
Quarter: 2025Q4

REPORT INFORMATION
  Report Type: Report from Study
  Country: CN (occurrence: CN)
  Receive Date: 20250408
  Receipt Date: 20251023
  Transmission Date: 20260117
  Serious: Yes (Hospitalization, Other)
  Sender: ROCHE
  Company Number: CN-ROCHE-10000247876

PATIENT
  Age: 5 Year
  Sex: Male

DRUGS (2)
  1. HEMLIBRA [Suspect]
     Active Substance: EMICIZUMAB-KXWH
     Indication: Factor VIII deficiency
     Route: 065
  2. HEMLIBRA [Suspect]
     Active Substance: EMICIZUMAB-KXWH
     Route: 065

REACTIONS (9)
  - Hepatic function abnormal [Unknown]
  - Renal impairment [Unknown]
  - Coagulopathy [Unknown]
  - Contusion [Unknown]
  - Hypochromic anaemia [Unknown]
  - Iron deficiency anaemia [Unknown]
  - Lymphadenitis [Unknown]
  - Gastrointestinal haemorrhage [Unknown]
  - Abdominal pain [Recovering/Resolving]

NARRATIVE: CASE EVENT DATE: 20250329
